FAERS Safety Report 18636576 (Version 2)
Quarter: 2020Q4

REPORT INFORMATION
  Report Type: Spontaneous
  Country: AU (occurrence: AU)
  Receive Date: 20201218
  Receipt Date: 20201231
  Transmission Date: 20210114
  Serious: Yes (Other)
  Sender: FDA-Public Use
  Company Number: AU-BAUSCH-BL-2020-035978

PATIENT
  Age: 47 Year
  Sex: Female

DRUGS (4)
  1. VORICONAZOLE. [Concomitant]
     Active Substance: VORICONAZOLE
     Indication: PRODUCT USED FOR UNKNOWN INDICATION
     Route: 065
  2. PREDNISOLONE. [Suspect]
     Active Substance: PREDNISOLONE
     Dosage: FOR THE LAST MONTH FROM THE REPORT
     Route: 065
     Dates: start: 202011
  3. PREDNISOLONE. [Suspect]
     Active Substance: PREDNISOLONE
     Indication: CHRONIC GRAFT VERSUS HOST DISEASE IN SKIN
     Dosage: FOR 3 MONTHS
     Route: 065
     Dates: start: 2020, end: 2020
  4. AZATHIOPRINE. [Suspect]
     Active Substance: AZATHIOPRINE
     Indication: CHRONIC GRAFT VERSUS HOST DISEASE IN SKIN
     Route: 065

REACTIONS (3)
  - Chronic graft versus host disease in skin [Unknown]
  - Treatment failure [Unknown]
  - Disease progression [Unknown]
